FAERS Safety Report 7874884-9 (Version None)
Quarter: 2011Q4

REPORT INFORMATION
  Report Type: 
  Country: None (occurrence: None)
  Receive Date: 20111031
  Receipt Date: 20111017
  Transmission Date: 20120403
  Serious: Yes (Other)
  Sender: FDA-Public Use
  Company Number: GR-RANBAXY-2011R1-43576

PATIENT
  Age: 67 Year
  Sex: Female

DRUGS (1)
  1. METFORMIN HCL [Suspect]
     Indication: PRODUCT USED FOR UNKNOWN INDICATION
     Dosage: 850 MG, TID
     Route: 065

REACTIONS (6)
  - DIARRHOEA [None]
  - DECREASED APPETITE [None]
  - MEDICATION ERROR [None]
  - HYPOPHOSPHATAEMIA [None]
  - RECTAL TENESMUS [None]
  - ASTHENIA [None]
